FAERS Safety Report 17115144 (Version 1)
Quarter: 2019Q4

REPORT INFORMATION
  Report Type: Spontaneous
  Country: US (occurrence: US)
  Receive Date: 20191204
  Receipt Date: 20191204
  Transmission Date: 20200122
  Serious: Yes (Other)
  Sender: FDA-Public Use
  Company Number: None

PATIENT
  Age: 40 Year
  Sex: Female
  Weight: 90 kg

DRUGS (8)
  1. LIDOCAINE PATCH [Concomitant]
     Active Substance: LIDOCAINE
  2. PRENATAL MVI [Concomitant]
     Active Substance: VITAMINS
  3. TYLENOL [Concomitant]
     Active Substance: ACETAMINOPHEN
  4. LATUDA [Suspect]
     Active Substance: LURASIDONE HYDROCHLORIDE
     Indication: PERINATAL DEPRESSION
     Route: 048
     Dates: start: 20191004, end: 20191203
  5. CLARITIN [Concomitant]
     Active Substance: LORATADINE
  6. ZYRTEC [Concomitant]
     Active Substance: CETIRIZINE HYDROCHLORIDE
  7. FLEXERIL [Concomitant]
     Active Substance: CYCLOBENZAPRINE HYDROCHLORIDE
  8. EPSOM SALT [Concomitant]
     Active Substance: MAGNESIUM SULFATE

REACTIONS (3)
  - Vomiting [None]
  - Nausea [None]
  - Urticaria [None]

NARRATIVE: CASE EVENT DATE: 20191130
